FAERS Safety Report 14629353 (Version 1)
Quarter: 2018Q1

REPORT INFORMATION
  Report Type: Spontaneous
  Country: US (occurrence: US)
  Receive Date: 20180312
  Receipt Date: 20180312
  Transmission Date: 20180509
  Serious: No
  Sender: FDA-Public Use
  Company Number: None

PATIENT
  Age: 72 Year
  Sex: Female
  Weight: 58.5 kg

DRUGS (2)
  1. AVENOVA [Concomitant]
  2. FLOVENT HFA [Suspect]
     Active Substance: FLUTICASONE PROPIONATE
     Indication: COUGH
     Dosage: ?          QUANTITY:2 PUFF(S);?
     Route: 055
     Dates: start: 20180201, end: 20180312

REACTIONS (1)
  - Abnormal dreams [None]

NARRATIVE: CASE EVENT DATE: 20180312
